FAERS Safety Report 7099130-8 (Version None)
Quarter: 2010Q4

REPORT INFORMATION
  Report Type: 
  Country: None (occurrence: None)
  Receive Date: 20101112
  Receipt Date: 20101108
  Transmission Date: 20110411
  Serious: Yes (Other)
  Sender: FDA-Public Use
  Company Number: B0683322A

PATIENT
  Age: 56 Year
  Sex: Male

DRUGS (12)
  1. REQUIP [Suspect]
     Indication: PARKINSON'S DISEASE
     Dosage: 8MG THREE TIMES PER DAY
     Route: 048
     Dates: start: 20070101, end: 20101001
  2. STALEVO 100 [Suspect]
     Indication: PARKINSON'S DISEASE
     Dosage: 200MG THREE TIMES PER DAY
     Route: 048
     Dates: end: 20101001
  3. AVODART [Concomitant]
     Route: 065
  4. ATACAND [Concomitant]
     Dosage: 8MG UNKNOWN
     Route: 065
  5. ALLOPURINOL [Concomitant]
     Route: 065
  6. TAMSULOSIN [Concomitant]
     Route: 065
  7. DEPAMIDE [Concomitant]
     Dosage: 300MG UNKNOWN
     Route: 065
  8. PROZAC [Concomitant]
     Dosage: 20MG UNKNOWN
     Route: 065
  9. XANAX [Concomitant]
     Dosage: .25MG UNKNOWN
     Route: 065
  10. RIVOTRIL [Concomitant]
     Route: 065
  11. NOCTRAN [Concomitant]
     Dosage: 10MG UNKNOWN
     Route: 065
  12. DAFALGAN [Concomitant]
     Route: 065

REACTIONS (6)
  - BULIMIA NERVOSA [None]
  - DRUG DEPENDENCE [None]
  - IMPULSE-CONTROL DISORDER [None]
  - IMPULSIVE BEHAVIOUR [None]
  - INSOMNIA [None]
  - WEIGHT INCREASED [None]
